FAERS Safety Report 18015706 (Version 1)
Quarter: 2020Q3

REPORT INFORMATION
  Report Type: Spontaneous
  Country: FR (occurrence: FR)
  Receive Date: 20200713
  Receipt Date: 20200713
  Transmission Date: 20201103
  Serious: Yes (Hospitalization)
  Sender: FDA-Public Use
  Company Number: FR-JNJFOC-20200707820

PATIENT
  Age: 71 Year
  Sex: Male
  Weight: 74.2 kg

DRUGS (2)
  1. LEXOMIL [Suspect]
     Active Substance: BROMAZEPAM
     Indication: POISONING DELIBERATE
     Route: 048
     Dates: start: 20200419, end: 20200419
  2. RIVAROXABAN [Suspect]
     Active Substance: RIVAROXABAN
     Indication: POISONING DELIBERATE
     Route: 048
     Dates: start: 20200419, end: 20200419

REACTIONS (4)
  - Melaena [Recovered/Resolved]
  - Somnolence [Recovered/Resolved]
  - Hyperthermia [Recovered/Resolved]
  - Hypotension [Recovered/Resolved]

NARRATIVE: CASE EVENT DATE: 20200419
